FAERS Safety Report 6693451-6 (Version None)
Quarter: 2010Q2

REPORT INFORMATION
  Report Type: 
  Country: None (occurrence: None)
  Receive Date: 20100423
  Receipt Date: 20100415
  Transmission Date: 20101027
  Serious: Yes (Hospitalization)
  Sender: FDA-Public Use
  Company Number: US-BIOGENIDEC-2009BI032806

PATIENT
  Age: 48 Year
  Sex: Male

DRUGS (5)
  1. AVONEX [Suspect]
     Indication: MULTIPLE SCLEROSIS
     Route: 030
     Dates: start: 20090101
  2. AVONEX [Suspect]
     Route: 030
     Dates: start: 20071101
  3. AMITRIPTYLINE [Concomitant]
  4. TYLENOL-500 [Concomitant]
  5. IBUPROFEN [Concomitant]

REACTIONS (4)
  - ABDOMINAL PAIN [None]
  - COLOSTOMY CLOSURE [None]
  - DIVERTICULITIS [None]
  - INTESTINAL PERFORATION [None]
